FAERS Safety Report 5646303-4 (Version None)
Quarter: 2008Q1

REPORT INFORMATION
  Report Type: 
  Country: None (occurrence: None)
  Receive Date: 20080303
  Receipt Date: 20080228
  Transmission Date: 20080703
  Serious: Yes (Disabling)
  Sender: FDA-Public Use
  Company Number: JP-SP-2008-00047

PATIENT
  Age: 65 Year
  Sex: Male

DRUGS (3)
  1. IMMUCYST [Suspect]
     Indication: BLADDER CANCER
     Route: 043
     Dates: start: 20071026, end: 20071221
  2. IMMUCYST [Suspect]
     Route: 043
     Dates: start: 20071026, end: 20071221
  3. LOXOPROFEN SODIUM [Concomitant]
     Dates: start: 20071119, end: 20071126

REACTIONS (11)
  - BLOOD GLUCOSE INCREASED [None]
  - CATHETER RELATED COMPLICATION [None]
  - CYSTITIS [None]
  - DRUG EFFECT DECREASED [None]
  - GLUCOSE URINE PRESENT [None]
  - ILL-DEFINED DISORDER [None]
  - INCONTINENCE [None]
  - POLLAKIURIA [None]
  - PROTEIN URINE PRESENT [None]
  - PYREXIA [None]
  - TUBERCULOSIS OF GENITOURINARY SYSTEM [None]
